FAERS Safety Report 6981196-4 (Version None)
Quarter: 2010Q3

REPORT INFORMATION
  Report Type: 
  Country: None (occurrence: None)
  Receive Date: 20100914
  Receipt Date: 20100902
  Transmission Date: 20110219
  Serious: Yes (Death)
  Sender: FDA-Public Use
  Company Number: US-PFIZER INC-2010076393

PATIENT
  Sex: Male

DRUGS (3)
  1. CHANTIX [Suspect]
     Indication: SMOKING CESSATION THERAPY
     Dosage: UNK
     Route: 048
     Dates: start: 20070701, end: 20070101
  2. CHANTIX [Suspect]
     Dosage: UNK
     Route: 048
     Dates: start: 20080101, end: 20080601
  3. BUPROPION HYDROCHLORIDE [Concomitant]
     Indication: DEPRESSION
     Dosage: UNK
     Dates: start: 20000101, end: 20080101

REACTIONS (1)
  - COMPLETED SUICIDE [None]
